FAERS Safety Report 4269137-4 (Version None)
Quarter: 2004Q1

REPORT INFORMATION
  Report Type: 
  Country: None (occurrence: None)
  Receive Date: 20040109
  Receipt Date: 20031223
  Transmission Date: 20041129
  Serious: Yes (Death)
  Sender: FDA-Public Use
  Company Number: KDL028642

PATIENT
  Age: 51 Year
  Sex: Female
  Weight: 61.3 kg

DRUGS (8)
  1. PROCRIT [Suspect]
     Indication: RENAL FAILURE CHRONIC
     Dosage: 4000 U, TWICE WEEKLY
     Dates: start: 20020301, end: 20021201
  2. PREDNISONE [Concomitant]
  3. AZATHIOPRINE [Concomitant]
  4. FUROSEMIDE [Concomitant]
  5. DOXAZOSIN MESYLATE [Concomitant]
  6. FOSINOPRIL SODIUM [Concomitant]
  7. ESTAZOLAM [Concomitant]
  8. CYCLOSPORINE [Concomitant]

REACTIONS (1)
  - CONTUSION [None]
